FAERS Safety Report 8117212-6 (Version None)
Quarter: 2012Q1

REPORT INFORMATION
  Report Type: 
  Country: None (occurrence: None)
  Receive Date: 20120206
  Receipt Date: 20120130
  Transmission Date: 20120608
  Serious: Yes (Hospitalization, Other)
  Sender: FDA-Public Use
  Company Number: BR-ABBOTT-12P-020-0891654-00

PATIENT
  Sex: Female
  Weight: 60 kg

DRUGS (10)
  1. METFORMIN HCL [Concomitant]
     Indication: DIABETES MELLITUS
     Dosage: 425 MG DAILY
     Route: 048
     Dates: start: 20050101
  2. UNKNOWN DRUG [Concomitant]
     Indication: HYPERTENSION
     Route: 048
  3. UNKNOWN DRUG [Concomitant]
     Indication: DIABETES MELLITUS
     Route: 048
  4. NIFEDIPINE [Concomitant]
     Indication: HYPERTENSION
     Dosage: 40 MILLIGRAM DAILY
     Route: 048
  5. HUMIRA [Suspect]
     Indication: RHEUMATOID ARTHRITIS
     Route: 058
     Dates: start: 20070101
  6. UNKNOWN DRUG [Concomitant]
     Route: 048
  7. ACETYLSALICYLIC ACID SRT [Concomitant]
     Indication: CARDIOVASCULAR DISORDER
     Dosage: 200 MG DAILY
     Dates: start: 20050101
  8. HUMIRA [Suspect]
     Dates: start: 20111209
  9. UNKNOWN DRUG [Concomitant]
     Route: 048
  10. NALPRIM [Concomitant]
     Indication: HYPERTENSION

REACTIONS (6)
  - SWELLING [None]
  - KIDNEY INFECTION [None]
  - ASTHENIA [None]
  - URINARY TRACT INFECTION [None]
  - WEIGHT DECREASED [None]
  - INFARCTION [None]
